FAERS Safety Report 9406543 (Version 3)
Quarter: 2013Q3

REPORT INFORMATION
  Report Type: Report from Study
  Country: BR (occurrence: BR)
  Receive Date: 20130718
  Receipt Date: 20130918
  Transmission Date: 20140515
  Serious: Yes (Other)
  Sender: FDA-Public Use
  Company Number: BR-ROCHE-1249527

PATIENT
  Age: 59 Year
  Sex: Female
  Weight: 53 kg

DRUGS (3)
  1. ACTEMRA [Suspect]
     Indication: RHEUMATOID ARTHRITIS
     Route: 065
     Dates: start: 20110723, end: 20130401
  2. ADVIL [Concomitant]
     Indication: PAIN
  3. LISADOR [Concomitant]
     Indication: PAIN

REACTIONS (1)
  - Lung neoplasm malignant [Not Recovered/Not Resolved]
